FAERS Safety Report 4292009-6 (Version None)
Quarter: 2004Q1

REPORT INFORMATION
  Report Type: 
  Country: None (occurrence: None)
  Receive Date: 20040126
  Receipt Date: 20030903
  Transmission Date: 20041129
  Serious: No
  Sender: FDA-Public Use
  Company Number: USA030946056

PATIENT
  Age: 78 Year
  Sex: Female
  Weight: 46 kg

DRUGS (5)
  1. FORTEO [Suspect]
     Indication: OSTEOPOROSIS
     Dosage: 20 UG/DAY
     Dates: start: 20030828
  2. EVISTA [Concomitant]
  3. ZESTRIL [Concomitant]
  4. ELAVIL [Concomitant]
  5. ANTACID TAB [Concomitant]

REACTIONS (1)
  - INJECTION SITE ERYTHEMA [None]
